FAERS Safety Report 11189503 (Version 1)
Quarter: 2015Q2

REPORT INFORMATION
  Report Type: Spontaneous
  Country: US (occurrence: US)
  Receive Date: 20150615
  Receipt Date: 20150615
  Transmission Date: 20150821
  Serious: Yes (Hospitalization)
  Sender: FDA-Public Use
  Company Number: US-DSJP-DSU-2014-114080

PATIENT
  Age: 66 Year
  Sex: Male

DRUGS (1)
  1. BENICAR [Suspect]
     Active Substance: OLMESARTAN MEDOXOMIL
     Indication: HYPERTENSION
     Dosage: 20 MG, QD
     Route: 048
     Dates: start: 20090126

REACTIONS (15)
  - Malabsorption [Unknown]
  - Diverticulum intestinal [Unknown]
  - Constipation [Unknown]
  - Palpitations [Unknown]
  - Bladder diverticulum [Unknown]
  - Hepatic function abnormal [Unknown]
  - Diplopia [Unknown]
  - Acute kidney injury [Unknown]
  - Alanine aminotransferase increased [Unknown]
  - Hepatic steatosis [Unknown]
  - Flank pain [Unknown]
  - Feeling abnormal [Unknown]
  - Hypotension [Unknown]
  - Haemorrhoids [Unknown]
  - Oedema [Unknown]

NARRATIVE: CASE EVENT DATE: 2013
